FAERS Safety Report 23866869 (Version 2)
Quarter: 2025Q2

REPORT INFORMATION
  Report Type: Spontaneous
  Country: US (occurrence: US)
  Receive Date: 20240517
  Receipt Date: 20250410
  Transmission Date: 20250716
  Serious: No
  Sender: KINIKSA PHARMACEUTICALS
  Company Number: US-Kiniksa Pharmaceuticals Ltd.-2024KPU000195

PATIENT
  Age: 71 Year
  Sex: Female

DRUGS (2)
  1. ARCALYST [Suspect]
     Active Substance: RILONACEPT
     Indication: Pericarditis
     Route: 058
     Dates: start: 20231120, end: 20231120
  2. ARCALYST [Suspect]
     Active Substance: RILONACEPT
     Route: 058
     Dates: start: 20231127

REACTIONS (11)
  - Nasopharyngitis [Recovering/Resolving]
  - Ear pain [Unknown]
  - Chills [Unknown]
  - Head discomfort [Unknown]
  - Rhinorrhoea [Unknown]
  - Eye irritation [Unknown]
  - Secretion discharge [Unknown]
  - Cough [Unknown]
  - Insomnia [Unknown]
  - Ear congestion [Unknown]
  - Product dose omission issue [Unknown]
